FAERS Safety Report 8186006-8 (Version None)
Quarter: 2012Q1

REPORT INFORMATION
  Report Type: 
  Country: None (occurrence: None)
  Receive Date: 20120306
  Receipt Date: 20120222
  Transmission Date: 20120608
  Serious: Yes (Hospitalization, Other)
  Sender: FDA-Public Use
  Company Number: SE-AMGEN-SWESP2012012970

PATIENT
  Age: 60 Year
  Sex: Female

DRUGS (6)
  1. ORUDIS - SLOW RELEASE [Concomitant]
     Dosage: UNK
  2. ENBREL [Suspect]
     Indication: PSORIATIC ARTHROPATHY
     Dosage: 50 MG, WEEKLY
     Route: 058
     Dates: start: 20090101, end: 20090923
  3. HUMIRA [Suspect]
     Indication: PSORIATIC ARTHROPATHY
     Dosage: UNK
  4. METHOTREXATE [Concomitant]
     Dosage: UNK
  5. REMICADE [Suspect]
     Indication: PSORIATIC ARTHROPATHY
     Dosage: UNK
  6. ENALAPRIL MALEATE [Concomitant]
     Dosage: UNK

REACTIONS (9)
  - MUSCULAR WEAKNESS [None]
  - CSF OLIGOCLONAL BAND PRESENT [None]
  - BACK PAIN [None]
  - MUSCULOSKELETAL STIFFNESS [None]
  - MOVEMENT DISORDER [None]
  - STIFF PERSON SYNDROME [None]
  - GAIT DISTURBANCE [None]
  - ANTI-GAD ANTIBODY POSITIVE [None]
  - MUSCLE SPASMS [None]
